FAERS Safety Report 8313702-1 (Version None)
Quarter: 2012Q2

REPORT INFORMATION
  Report Type: 
  Country: None (occurrence: None)
  Receive Date: 20120426
  Receipt Date: 20120420
  Transmission Date: 20120825
  Serious: Yes (Other)
  Sender: FDA-Public Use
  Company Number: PHHY2012IN031981

PATIENT
  Age: 60 Year
  Sex: Male

DRUGS (4)
  1. ZOLEDRONOC ACID [Suspect]
     Indication: OSTEOPOROSIS
     Dosage: 5 MG
     Route: 042
     Dates: start: 20120301
  2. BRIMOLOL [Concomitant]
  3. PREDACETATE [Concomitant]
  4. CHLORAMPHENICOL [Concomitant]

REACTIONS (3)
  - BLINDNESS [None]
  - ERYTHEMA [None]
  - PAIN [None]
